FAERS Safety Report 12639350 (Version 1)
Quarter: 2016Q3

REPORT INFORMATION
  Report Type: Spontaneous
  Country: US (occurrence: US)
  Receive Date: 20160810
  Receipt Date: 20160810
  Transmission Date: 20161109
  Serious: No
  Sender: FDA-Public Use
  Company Number: US-SUN PHARMACEUTICAL INDUSTRIES LTD-2015US-104891

PATIENT
  Sex: Female
  Weight: 124 kg

DRUGS (1)
  1. TRAMADOL. [Suspect]
     Active Substance: TRAMADOL
     Indication: CERVICAL SPINAL STENOSIS
     Dosage: 01 DF, BID
     Route: 048

REACTIONS (1)
  - Drug ineffective [Unknown]
